FAERS Safety Report 7054906-8 (Version None)
Quarter: 2010Q4

REPORT INFORMATION
  Report Type: 
  Country: None (occurrence: None)
  Receive Date: 20101021
  Receipt Date: 20101012
  Transmission Date: 20110411
  Serious: No
  Sender: FDA-Public Use
  Company Number: US-BIOGENIDEC-2010BI035806

PATIENT
  Sex: Female

DRUGS (1)
  1. TYSABRI [Suspect]
     Indication: MULTIPLE SCLEROSIS
     Route: 042
     Dates: start: 20071026, end: 20100601

REACTIONS (4)
  - COGNITIVE DISORDER [None]
  - FATIGUE [None]
  - HAEMORRHOIDS [None]
  - OBSESSIVE-COMPULSIVE DISORDER [None]
